FAERS Safety Report 18161792 (Version 4)
Quarter: 2020Q3

REPORT INFORMATION
  Report Type: Spontaneous
  Country: US (occurrence: US)
  Receive Date: 20200817
  Receipt Date: 20200828
  Transmission Date: 20201103
  Serious: Yes (Death, Hospitalization)
  Sender: FDA-Public Use
  Company Number: US-CELGENEUS-USA-20200802243

PATIENT
  Sex: Female

DRUGS (1)
  1. REVLIMID [Suspect]
     Active Substance: LENALIDOMIDE
     Indication: PLASMA CELL MYELOMA
     Dosage: 10 MILLIGRAM
     Route: 048
     Dates: start: 20200706

REACTIONS (4)
  - Plasma cell myeloma [Fatal]
  - Decubitus ulcer [Unknown]
  - Peripheral swelling [Unknown]
  - Heart rate increased [Unknown]

NARRATIVE: CASE EVENT DATE: 2020
